FAERS Safety Report 4472769-1 (Version None)
Quarter: 2004Q4

REPORT INFORMATION
  Report Type: 
  Country: None (occurrence: None)
  Receive Date: 20041012
  Receipt Date: 20041012
  Transmission Date: 20050328
  Serious: No
  Sender: FDA-Public Use
  Company Number: None

PATIENT
  Age: 57 Year
  Sex: Male
  Weight: 68.0396 kg

DRUGS (1)
  1. LIPITOR [Suspect]
     Indication: BLOOD CHOLESTEROL INCREASED
     Dosage: 1/DAY MOUTH ORAL
     Route: 048
     Dates: start: 20040409, end: 20040609

REACTIONS (4)
  - ARTHRALGIA [None]
  - LOSS OF LIBIDO [None]
  - MARITAL PROBLEM [None]
  - MYALGIA [None]
